FAERS Safety Report 22988051 (Version 4)
Quarter: 2023Q4

REPORT INFORMATION
  Report Type: Report from Study
  Country: CA (occurrence: CA)
  Receive Date: 20230926
  Receipt Date: 20231201
  Transmission Date: 20240110
  Serious: Yes (Life-Threatening, Other)
  Sender: FDA-Public Use
  Company Number: CA-MYLANLABS-2023M1100606

PATIENT
  Age: 88 Year
  Sex: Female

DRUGS (2)
  1. EPIPEN [Suspect]
     Active Substance: EPINEPHRINE
     Indication: Allergy to arthropod sting
     Dosage: UNK
     Route: 065
  2. EPIPEN [Suspect]
     Active Substance: EPINEPHRINE
     Indication: Emergency care
     Dosage: 0.3 MILLIGRAM PER UNIT PEN (AS NEEDED)
     Route: 030

REACTIONS (3)
  - Anaphylactic reaction [Recovered/Resolved]
  - Product storage error [Unknown]
  - Device failure [Unknown]
